FAERS Safety Report 4545894-4 (Version None)
Quarter: 2005Q1

REPORT INFORMATION
  Report Type: 
  Country: None (occurrence: None)
  Receive Date: 20050103
  Receipt Date: 20041220
  Transmission Date: 20050727
  Serious: Yes (Other)
  Sender: FDA-Public Use
  Company Number: 2004116994

PATIENT
  Age: 7 Year
  Sex: Female
  Weight: 22.6799 kg

DRUGS (1)
  1. GENOTROPIN [Suspect]
     Indication: GROWTH RETARDATION
     Dosage: 1 MG (1 MG, QD INTERVAL: EVERY DAY, SUBCUTANEOUS
     Route: 058
     Dates: start: 20020101

REACTIONS (4)
  - BRAIN DAMAGE [None]
  - COMMUNICATION DISORDER [None]
  - PHONOLOGICAL DISORDER [None]
  - READING DISORDER [None]
